FAERS Safety Report 4715984-1 (Version None)
Quarter: 2005Q3

REPORT INFORMATION
  Report Type: 
  Country: None (occurrence: None)
  Receive Date: 20050718
  Receipt Date: 20050525
  Transmission Date: 20060218
  Serious: Yes (Other)
  Sender: FDA-Public Use
  Company Number: US-GLAXOSMITHKLINE-A0560119A

PATIENT
  Sex: Female

DRUGS (3)
  1. LAMICTAL [Suspect]
     Route: 048
  2. IRON [Concomitant]
  3. VITAMIN CAP [Concomitant]

REACTIONS (12)
  - ARTHRALGIA [None]
  - DELAYED MENARCHE [None]
  - HEADACHE [None]
  - MYALGIA [None]
  - NAUSEA [None]
  - NECK PAIN [None]
  - PAIN IN EXTREMITY [None]
  - RASH [None]
  - THINKING ABNORMAL [None]
  - VAGINAL DISCHARGE [None]
  - VAGINAL SWELLING [None]
  - VISUAL ACUITY REDUCED [None]
